FAERS Safety Report 4779738-2 (Version None)
Quarter: 2005Q3

REPORT INFORMATION
  Report Type: 
  Country: None (occurrence: None)
  Receive Date: 20050927
  Receipt Date: 20050916
  Transmission Date: 20060218
  Serious: Yes (Hospitalization, Other)
  Sender: FDA-Public Use
  Company Number: PHRM2005FR02525

PATIENT
  Sex: Female

DRUGS (4)
  1. TAXOTERE [Suspect]
     Indication: BREAST CANCER METASTATIC
     Dates: start: 20030828, end: 20030918
  2. FARMORUBICIN [Suspect]
     Indication: BREAST CANCER METASTATIC
     Dates: start: 20030925, end: 20040824
  3. ZOMETA [Suspect]
     Indication: METASTASES TO BONE
     Dosage: 6 COURSES
     Route: 042
     Dates: start: 20040901, end: 20041027
  4. CARDIOXANE [Suspect]
     Indication: PROPHYLAXIS
     Dosage: UNK, UNK
     Route: 042
     Dates: start: 20030801, end: 20041001

REACTIONS (4)
  - EJECTION FRACTION DECREASED [None]
  - LEFT VENTRICULAR FAILURE [None]
  - PULMONARY OEDEMA [None]
  - VENTRICULAR DYSFUNCTION [None]
